FAERS Safety Report 6423318-X (Version None)
Quarter: 2009Q4

REPORT INFORMATION
  Report Type: 
  Country: None (occurrence: None)
  Receive Date: 20091102
  Receipt Date: 20091026
  Transmission Date: 20100525
  Serious: Yes (Congenital Anomaly)
  Sender: FDA-Public Use
  Company Number: TR-ELI_LILLY_AND_COMPANY-TR200910006220

PATIENT
  Sex: Female

DRUGS (2)
  1. HUMULIN R [Suspect]
     Dosage: 18 U, 3/D
     Route: 064
     Dates: start: 20090426
  2. HUMULIN N [Suspect]
     Dosage: 18 U, DAILY (1/D)
     Route: 064
     Dates: start: 20090426

REACTIONS (3)
  - DRUG EXPOSURE DURING PREGNANCY [None]
  - HEART DISEASE CONGENITAL [None]
  - PREMATURE BABY [None]
